APPROVED DRUG PRODUCT: RANITIDINE HYDROCHLORIDE
Active Ingredient: RANITIDINE HYDROCHLORIDE
Strength: EQ 75MG BASE
Dosage Form/Route: TABLET;ORAL
Application: A075294 | Product #001
Applicant: DR REDDYS LABORATORIES LTD
Approved: Mar 28, 2000 | RLD: No | RS: No | Type: OTC